FAERS Safety Report 21330046 (Version 2)
Quarter: 2022Q3

REPORT INFORMATION
  Report Type: Spontaneous
  Country: US (occurrence: US)
  Receive Date: 20220913
  Receipt Date: 20220916
  Transmission Date: 20221026
  Serious: No
  Sender: FDA-Public Use
  Company Number: US-PFIZER INC-202201156895

PATIENT
  Age: 64 Year
  Sex: Female
  Weight: 78.47 kg

DRUGS (16)
  1. PAXLOVID [Suspect]
     Active Substance: NIRMATRELVIR\RITONAVIR
     Indication: COVID-19 treatment
     Dosage: UNK, 2X/DAY (SHE TAKES THE MORNING PACK IN THE MORNING AND THE EVENING PACK IN THE EVENING)
     Dates: start: 20220911
  2. SYMBICORT [Concomitant]
     Active Substance: BUDESONIDE\FORMOTEROL FUMARATE DIHYDRATE
     Dosage: 2 DF, 2X/DAY (2 PUFFS TWICE A DAY)
  3. FLONASE [Concomitant]
     Active Substance: FLUTICASONE PROPIONATE
     Dosage: UNK UNK, 1X/DAY
  4. PREDNISONE [Concomitant]
     Active Substance: PREDNISONE
     Indication: Pneumonia
     Dosage: 40MG ONCE A DAY FOR 4 DAYS
  5. ACETAZOLAMIDE [Concomitant]
     Active Substance: ACETAZOLAMIDE
     Indication: Hydrocephalus
     Dosage: 250 MG, 2X/DAY (250MG TWICE A DAY FOR 500MG A DAY)
     Dates: start: 202206
  6. HYDROXYCHLOROQUINE [Concomitant]
     Active Substance: HYDROXYCHLOROQUINE
     Indication: Systemic lupus erythematosus
     Dosage: 400 MG, DAILY (400 MG A DAY)
     Dates: start: 202204
  7. CETIRIZINE [Concomitant]
     Active Substance: CETIRIZINE HYDROCHLORIDE
     Dosage: 10 MG, 1X/DAY (10MG ONCE A DAY)
  8. CEFDINIR [Concomitant]
     Active Substance: CEFDINIR
     Indication: Pneumonia
     Dosage: UNK
  9. MAGNESIUM [Concomitant]
     Active Substance: MAGNESIUM
     Indication: Vitamin supplementation
     Dosage: UNK
  10. ZINC [Concomitant]
     Active Substance: ZINC
     Indication: Vitamin supplementation
     Dosage: UNK
  11. COENZYME Q10 [Concomitant]
     Active Substance: DIETARY SUPPLEMENT\UBIDECARENONE
     Indication: Vitamin supplementation
     Dosage: UNK
  12. VITAMIN C [Concomitant]
     Active Substance: ASCORBIC ACID
     Indication: Vitamin supplementation
     Dosage: UNK
  13. TYLENOL [Concomitant]
     Active Substance: ACETAMINOPHEN
     Dosage: UNK, AS NEEDED
  14. PROVENTIL [Concomitant]
     Active Substance: ALBUTEROL
     Dosage: UNK, AS NEEDED
  15. SODIUM CHLORIDE [Concomitant]
     Active Substance: SODIUM CHLORIDE
     Indication: Illness
     Dosage: UNK , AS NEEDED
  16. FLUTICASONE [Concomitant]
     Active Substance: FLUTICASONE
     Dosage: 2 DF, 1X/DAY (2 SPRAYS ONCE A DAY)

REACTIONS (1)
  - Pruritus [Unknown]

NARRATIVE: CASE EVENT DATE: 20220901
